FAERS Safety Report 26081894 (Version 1)
Quarter: 2025Q4

REPORT INFORMATION
  Report Type: Spontaneous
  Country: EU (occurrence: EU)
  Receive Date: 20251124
  Receipt Date: 20251124
  Transmission Date: 20260117
  Serious: Yes (Other)
  Sender: ROCHE
  Company Number: None

PATIENT
  Age: 59 Year
  Sex: Female
  Weight: 50 kg

DRUGS (4)
  1. COTELLIC [Suspect]
     Active Substance: COBIMETINIB FUMARATE
     Indication: Malignant melanoma
     Route: 048
     Dates: start: 202006
  2. ZELBORAF [Suspect]
     Active Substance: VEMURAFENIB
     Indication: Malignant melanoma
     Route: 048
     Dates: start: 202006
  3. TIMONACIC [Concomitant]
     Active Substance: TIMONACIC
     Indication: Product used for unknown indication
     Dosage: 1X1
     Route: 048
     Dates: start: 202012
  4. CLEMASTINE [Concomitant]
     Active Substance: CLEMASTINE
     Indication: Product used for unknown indication
     Dosage: 3X1
     Route: 048
     Dates: start: 202012

REACTIONS (5)
  - Diarrhoea [Recovering/Resolving]
  - Pruritus [Recovering/Resolving]
  - Dermatitis allergic [Recovering/Resolving]
  - Eye inflammation [Recovering/Resolving]
  - Hepatic function abnormal [Recovering/Resolving]

NARRATIVE: CASE EVENT DATE: 20200601
